FAERS Safety Report 7997631-9 (Version None)
Quarter: 2011Q4

REPORT INFORMATION
  Report Type: 
  Country: None (occurrence: None)
  Receive Date: 20111221
  Receipt Date: 20111214
  Transmission Date: 20120403
  Serious: Yes (Hospitalization)
  Sender: FDA-Public Use
  Company Number: US-US-EMD SERONO, INC.-7101984

PATIENT
  Sex: Female

DRUGS (3)
  1. NEURONTIN [Concomitant]
  2. BACLOFEN [Concomitant]
  3. REBIF [Suspect]
     Indication: MULTIPLE SCLEROSIS
     Route: 058
     Dates: start: 20071008

REACTIONS (5)
  - INJECTION SITE SCAR [None]
  - INFLUENZA LIKE ILLNESS [None]
  - INJECTION SITE PAIN [None]
  - VERTIGO [None]
  - INJECTION SITE HAEMATOMA [None]
